FAERS Safety Report 8586780-2 (Version None)
Quarter: 2012Q3

REPORT INFORMATION
  Report Type: 
  Country: None (occurrence: None)
  Receive Date: 20120810
  Receipt Date: 20120806
  Transmission Date: 20120928
  Serious: Yes (Death, Hospitalization, Other)
  Sender: FDA-Public Use
  Company Number: US-ELI_LILLY_AND_COMPANY-US201206009533

PATIENT
  Sex: Female

DRUGS (21)
  1. ASPIRIN [Concomitant]
     Indication: ATRIAL FIBRILLATION
     Dosage: 325 MG, QD
     Route: 048
  2. BUMETANIDE [Concomitant]
     Indication: HYPERTENSION
     Dosage: 1 MG, QD
     Route: 048
  3. PERIACTIN [Concomitant]
     Indication: DECREASED APPETITE
     Dosage: 4 MG, TID
     Route: 048
  4. LATANOPROST [Concomitant]
     Indication: GLAUCOMA
     Dosage: UNK, EACH EVENING
     Route: 047
  5. PREDNISONE TAB [Concomitant]
     Indication: POLYMYALGIA RHEUMATICA
     Dosage: 10 MG, QD
  6. PROSTAT [Concomitant]
     Indication: SUPPLEMENTATION THERAPY
     Dosage: UNK, BID
  7. TIMOLOL MALEATE [Concomitant]
     Indication: MACULAR DEGENERATION
     Dosage: UNK, QD
     Route: 047
  8. MACROBID [Concomitant]
     Indication: URINARY TRACT INFECTION
     Dosage: 100 MG, BID
     Route: 048
  9. PRILOSEC [Concomitant]
     Indication: GASTROOESOPHAGEAL REFLUX DISEASE
     Dosage: 40 MG, QD
  10. ZINC SULFATE [Concomitant]
     Indication: SUPPLEMENTATION THERAPY
     Dosage: 220 MG, QD
     Route: 048
  11. CIPROFLOXACIN HCL [Concomitant]
     Indication: URINARY TRACT INFECTION
     Dosage: 500 MG, BID
     Route: 048
  12. FORTEO [Suspect]
     Indication: OSTEOPOROSIS
     Dosage: 20 UG, QD
     Route: 058
  13. PERCOCET [Concomitant]
     Indication: PAIN
     Dosage: UNK, PRN
     Route: 048
  14. ZYVOX [Concomitant]
     Indication: URINARY TRACT INFECTION
     Dosage: 600 MG, BID
     Route: 048
  15. PRADAXA [Concomitant]
     Indication: ATRIAL FIBRILLATION
     Dosage: 75 MG, BID
     Route: 048
  16. LOPRESSOR [Concomitant]
     Indication: HYPERTENSION
     Dosage: 50 MG, BID
     Route: 048
  17. CELEXA [Concomitant]
     Indication: DEPRESSION
     Dosage: 20 MG, QD
     Route: 048
  18. COLACE [Concomitant]
     Indication: CONSTIPATION
     Dosage: 100 MG, BID
     Route: 048
  19. MIRALAX [Concomitant]
     Indication: CONSTIPATION
     Dosage: UNK, PRN
  20. LISINOPRIL [Concomitant]
     Indication: HYPERTENSION
     Dosage: 20 MG, BID
     Route: 048
  21. POTASSIUM [Concomitant]
     Indication: SUPPLEMENTATION THERAPY
     Dosage: 20 MEQ, QD
     Route: 048

REACTIONS (9)
  - DYSPNOEA [None]
  - RENAL FAILURE ACUTE [None]
  - URINARY TRACT INFECTION [None]
  - MENTAL STATUS CHANGES [None]
  - HYPOXIA [None]
  - HIP ARTHROPLASTY [None]
  - PNEUMONIA [None]
  - CARDIAC FAILURE CONGESTIVE [None]
  - DEHYDRATION [None]
